FAERS Safety Report 8156503-X (Version None)
Quarter: 2012Q1

REPORT INFORMATION
  Report Type: 
  Country: None (occurrence: None)
  Receive Date: 20120216
  Receipt Date: 20120207
  Transmission Date: 20120608
  Serious: Yes (Hospitalization)
  Sender: FDA-Public Use
  Company Number: 2012HGS-003086

PATIENT
  Age: 27 Year
  Sex: Female
  Weight: 40.3701 kg

DRUGS (4)
  1. METHOTREXATE [Concomitant]
  2. PLAQUENIL (HYDROXYCHLOROQUINE SULFATE0 (HYDROXYCHLOROQUINE SULFATE) [Concomitant]
  3. PRENISONE (PREDNISONE) (PREDNISONE) [Concomitant]
  4. BENLYSTA [Suspect]
     Indication: SYSTEMIC LUPUS ERYTHEMATOSUS
     Dosage: 120 MG, 1 IN 28 D, INTRAVENOUS
     Route: 042
     Dates: start: 20111214, end: 20120112

REACTIONS (12)
  - HEMIPARESIS [None]
  - HYPOAESTHESIA [None]
  - HEADACHE [None]
  - CONDITION AGGRAVATED [None]
  - HEMIPLEGIA [None]
  - NEUROPSYCHIATRIC LUPUS [None]
  - PARAESTHESIA [None]
  - CONVULSION [None]
  - MENTAL IMPAIRMENT [None]
  - CONFUSIONAL STATE [None]
  - URINARY TRACT INFECTION [None]
  - KIDNEY INFECTION [None]
